FAERS Safety Report 22661576 (Version 1)
Quarter: 2023Q2

REPORT INFORMATION
  Report Type: Spontaneous
  Country: TW (occurrence: TW)
  Receive Date: 20230630
  Receipt Date: 20230630
  Transmission Date: 20230721
  Serious: No
  Sender: FDA-Public Use
  Company Number: TW-JAZZ-2023-TW-001178

PATIENT
  Age: 17 Year

DRUGS (1)
  1. CANNABIDIOL [Suspect]
     Active Substance: CANNABIDIOL
     Dosage: UNK

REACTIONS (5)
  - Unevaluable event [Unknown]
  - Inappropriate affect [Unknown]
  - Ataxia [Unknown]
  - Somnolence [Unknown]
  - Weight decreased [Unknown]
